FAERS Safety Report 4746671-1 (Version None)
Quarter: 2005Q3

REPORT INFORMATION
  Report Type: 
  Country: None (occurrence: None)
  Receive Date: 20050816
  Receipt Date: 20050816
  Transmission Date: 20060218
  Serious: Yes (Life-Threatening)
  Sender: FDA-Public Use
  Company Number: None

PATIENT
  Age: 57 Year
  Sex: Female
  Weight: 136.0791 kg

DRUGS (2)
  1. ATENOLOL [Suspect]
     Indication: FIBROMYALGIA
     Dosage: 100 MG /DAILY PO DAILY
     Route: 048
     Dates: start: 19951101, end: 19960401
  2. ATENOLOL [Suspect]
     Indication: MITRAL VALVE PROLAPSE
     Dosage: 100 MG /DAILY PO DAILY
     Route: 048
     Dates: start: 19951101, end: 19960401

REACTIONS (2)
  - DEPRESSION [None]
  - SUICIDAL IDEATION [None]
